FAERS Safety Report 24344292 (Version 2)
Quarter: 2024Q4

REPORT INFORMATION
  Report Type: Spontaneous
  Country: US (occurrence: US)
  Receive Date: 20240920
  Receipt Date: 20241209
  Transmission Date: 20250115
  Serious: No
  Sender: SANOFI AVENTIS
  Company Number: US-SA-2024SA270153

PATIENT
  Age: 67 Year
  Sex: Male

DRUGS (3)
  1. DUPIXENT [Suspect]
     Active Substance: DUPILUMAB
     Indication: Asthma
     Dosage: 300 MG, QOW
     Route: 058
  2. THEOPHYLLINE [Concomitant]
     Active Substance: THEOPHYLLINE
     Dosage: 800 MG
  3. THEOPHYLLINE [Concomitant]
     Active Substance: THEOPHYLLINE
     Dosage: 600 MG

REACTIONS (5)
  - Temperature intolerance [Unknown]
  - Dyspnoea [Unknown]
  - Chest discomfort [Unknown]
  - Secretion discharge [Unknown]
  - Diarrhoea [Unknown]
